FAERS Safety Report 25153396 (Version 1)
Quarter: 2025Q2

REPORT INFORMATION
  Report Type: Spontaneous
  Country: US (occurrence: US)
  Receive Date: 20250403
  Receipt Date: 20250403
  Transmission Date: 20250717
  Serious: Yes (Death, Hospitalization)
  Sender: DENDREON
  Company Number: US-DENDREON PHARMACEUTICAL LLC-2025DEN000108

PATIENT

DRUGS (5)
  1. PROVENGE [Suspect]
     Active Substance: SIPULEUCEL-T
     Indication: Prostate cancer metastatic
     Route: 042
     Dates: start: 20250313, end: 20250313
  2. ATORVASTATIN [Concomitant]
     Active Substance: ATORVASTATIN
     Route: 065
  3. DORZOLAMIDE HYDROCHLORIDE\TIMOLOL MALEATE [Concomitant]
     Active Substance: DORZOLAMIDE HYDROCHLORIDE\TIMOLOL MALEATE
     Indication: Product used for unknown indication
     Route: 065
  4. FLOMAX [Concomitant]
     Active Substance: TAMSULOSIN HYDROCHLORIDE
     Indication: Benign prostatic hyperplasia
     Route: 065
  5. MIRTAZAPINE [Concomitant]
     Active Substance: MIRTAZAPINE
     Indication: Product used for unknown indication
     Route: 065

REACTIONS (6)
  - Disease progression [Fatal]
  - Hypotension [Not Recovered/Not Resolved]
  - Asthenia [Not Recovered/Not Resolved]
  - Fall [Recovered/Resolved]
  - Poor quality sleep [Not Recovered/Not Resolved]
  - Decreased appetite [Not Recovered/Not Resolved]

NARRATIVE: CASE EVENT DATE: 20250301
